FAERS Safety Report 17443787 (Version 1)
Quarter: 2020Q1

REPORT INFORMATION
  Report Type: Spontaneous
  Country: CN (occurrence: CN)
  Receive Date: 20200221
  Receipt Date: 20200221
  Transmission Date: 20200409
  Serious: Yes (Other)
  Sender: FDA-Public Use
  Company Number: CN-BAXTER-2020BAX003725

PATIENT
  Age: 54 Year
  Sex: Female
  Weight: 56 kg

DRUGS (12)
  1. 0.9% SODIUM CHLORIDE INJECTION [Suspect]
     Active Substance: SODIUM CHLORIDE
     Dosage: SECOND CHEMOTHERAPY, TAISUODI 115 MG+ NS 250 ML
     Route: 041
     Dates: start: 20191209, end: 20191209
  2. ENDOXAN [Suspect]
     Active Substance: CYCLOPHOSPHAMIDE
     Dosage: DOSE RE-INTRODUCED, ENDOXAN + NS
     Route: 042
  3. 0.9% SODIUM CHLORIDE INJECTION [Suspect]
     Active Substance: SODIUM CHLORIDE
     Dosage: SECOND CHEMOTHERAPY, ENDOXAN 900 MG+ NS 45 ML
     Route: 042
     Dates: start: 20191209, end: 20191209
  4. ENDOXAN [Suspect]
     Active Substance: CYCLOPHOSPHAMIDE
     Dosage: SECOND CHEMOTHERAPY, ENDOXAN 900 MG+ NS 45 ML
     Route: 042
     Dates: start: 20191209, end: 20191209
  5. 0.9% SODIUM CHLORIDE INJECTION [Suspect]
     Active Substance: SODIUM CHLORIDE
     Dosage: DOSE RE-INTRODUCED, ENDOXAN + NS
     Route: 042
  6. ENDOXAN [Suspect]
     Active Substance: CYCLOPHOSPHAMIDE
     Indication: BREAST CANCER FEMALE
     Dosage: FIRST CHEMOTHERAPY , ENDOXAN + NS
     Route: 042
  7. 0.9% SODIUM CHLORIDE INJECTION [Suspect]
     Active Substance: SODIUM CHLORIDE
     Indication: MEDICATION DILUTION
     Dosage: FIRST CHEMOTHERAPY , ENDOXAN + NS
     Route: 042
  8. 0.9% SODIUM CHLORIDE INJECTION [Suspect]
     Active Substance: SODIUM CHLORIDE
     Dosage: DOSE RE-INTRODUCED, TAISUODI+ NS
     Route: 041
  9. TAISUODI [DOCETAXEL] [Suspect]
     Active Substance: DOCETAXEL
     Dosage: DOSE RE-INTRODUCED, TAISUODI + NS
     Route: 041
  10. 0.9% SODIUM CHLORIDE INJECTION [Suspect]
     Active Substance: SODIUM CHLORIDE
     Dosage: FIRST CHEMOTHERAPY, TAISUODI + NS
     Route: 041
  11. TAISUODI [DOCETAXEL] [Suspect]
     Active Substance: DOCETAXEL
     Indication: BREAST CANCER FEMALE
     Dosage: FIRST CHEMOTHERAPY, TAISUODI + NS
     Route: 041
  12. TAISUODI [DOCETAXEL] [Suspect]
     Active Substance: DOCETAXEL
     Dosage: SECOND CHEMOTHERAPY, TAISUODI 115 MG+ NS 250 ML
     Route: 041
     Dates: start: 20191209, end: 20191209

REACTIONS (1)
  - Agranulocytosis [Recovered/Resolved]

NARRATIVE: CASE EVENT DATE: 20191216
